FAERS Safety Report 6195814-4 (Version None)
Quarter: 2009Q2

REPORT INFORMATION
  Report Type: 
  Country: None (occurrence: None)
  Receive Date: 20090520
  Receipt Date: 20070410
  Transmission Date: 20091009
  Serious: Yes (Hospitalization, Other)
  Sender: FDA-Public Use
  Company Number: US-ASTRAZENECA-2006UW22586

PATIENT
  Age: 15009 Day
  Sex: Male
  Weight: 82.6 kg

DRUGS (23)
  1. SEROQUEL [Suspect]
     Indication: INSOMNIA
     Route: 048
     Dates: start: 19990501, end: 20020528
  2. SEROQUEL [Suspect]
     Indication: PARANOIA
     Route: 048
     Dates: start: 19990501, end: 20020528
  3. SEROQUEL [Suspect]
     Indication: PSYCHOTIC DISORDER
     Route: 048
     Dates: start: 19990501, end: 20020528
  4. SEROQUEL [Suspect]
     Dosage: 100 - 400 MG
     Route: 048
     Dates: start: 19990714
  5. SEROQUEL [Suspect]
     Dosage: 100 - 400 MG
     Route: 048
     Dates: start: 19990714
  6. SEROQUEL [Suspect]
     Dosage: 100 - 400 MG
     Route: 048
     Dates: start: 19990714
  7. RISPERDAL [Concomitant]
     Route: 065
  8. ZOLOFT [Concomitant]
     Indication: DEPRESSIVE SYMPTOM
     Dosage: 50 - 300 MG
     Route: 048
     Dates: start: 19990519
  9. ZOLOFT [Concomitant]
     Indication: GENERALISED ANXIETY DISORDER
     Dosage: 50 - 300 MG
     Route: 048
     Dates: start: 19990519
  10. GLYBURIDE [Concomitant]
     Dosage: 2.5 - 10 MG
     Route: 048
     Dates: start: 20000917
  11. COMBIVENT [Concomitant]
     Route: 055
     Dates: start: 19991228
  12. TOPROL-XL [Concomitant]
     Dosage: 25 - 100 MG
     Route: 048
     Dates: start: 19991228
  13. LIPITOR [Concomitant]
     Indication: HYPERLIPIDAEMIA
     Route: 048
     Dates: start: 20000917
  14. MOTRIN [Concomitant]
     Indication: BACK PAIN
     Route: 048
     Dates: start: 20010529
  15. GABAPENTIN [Concomitant]
     Dosage: 100 - 200 MG
     Route: 048
     Dates: start: 20010427
  16. BUSPAR [Concomitant]
     Indication: ANXIETY
     Dosage: 12.5 - 45 MG
     Route: 048
     Dates: start: 20010529
  17. ZANTAC [Concomitant]
     Indication: GASTROOESOPHAGEAL REFLUX DISEASE
     Route: 048
     Dates: start: 20000406
  18. PROZAC [Concomitant]
     Dosage: 10 - 30 MG
     Route: 048
     Dates: start: 19991215
  19. ACTOS [Concomitant]
     Route: 065
     Dates: start: 20070110
  20. CLONAZEPAM [Concomitant]
     Indication: ANXIETY
     Route: 048
     Dates: start: 20040130
  21. ALBUTEROL [Concomitant]
     Route: 055
     Dates: start: 20011119
  22. EFFEXOR [Concomitant]
     Route: 065
     Dates: start: 20050607
  23. LISINOPRIL [Concomitant]
     Route: 065
     Dates: start: 20000917

REACTIONS (26)
  - ABDOMINAL DISCOMFORT [None]
  - DECREASED APPETITE [None]
  - DELUSION [None]
  - DEPRESSION [None]
  - DRY MOUTH [None]
  - HYPOGLYCAEMIA [None]
  - INSOMNIA [None]
  - LIBIDO DECREASED [None]
  - MAJOR DEPRESSION [None]
  - MUSCULOSKELETAL PAIN [None]
  - NAUSEA [None]
  - NEOPLASM PROSTATE [None]
  - PARANOIA [None]
  - PERSONALITY DISORDER [None]
  - PHARYNGITIS [None]
  - PROTRUSION TONGUE [None]
  - PSYCHOTIC DISORDER [None]
  - SEDATION [None]
  - SUICIDAL IDEATION [None]
  - SYNCOPE [None]
  - TONSILLITIS [None]
  - TOOTH ABSCESS [None]
  - TYPE 2 DIABETES MELLITUS [None]
  - UPPER RESPIRATORY TRACT INFECTION [None]
  - VIRAL INFECTION [None]
  - WEIGHT DECREASED [None]
